FAERS Safety Report 6046591-9 (Version None)
Quarter: 2009Q1

REPORT INFORMATION
  Report Type: 
  Country: None (occurrence: None)
  Receive Date: 20090122
  Receipt Date: 20090112
  Transmission Date: 20090719
  Serious: Yes (Hospitalization)
  Sender: FDA-Public Use
  Company Number: PHFR2002IE01465

PATIENT
  Sex: Female

DRUGS (10)
  1. CLOZARIL [Suspect]
     Indication: SCHIZOPHRENIA
     Dosage: 675MG/DAY
     Route: 048
     Dates: start: 19990622
  2. CLOZARIL [Suspect]
     Dosage: 600MG DAILY
     Route: 048
     Dates: start: 20040427
  3. DELTACORTRIL [Concomitant]
     Route: 065
  4. MAXOLON [Concomitant]
  5. HYDROCORTISONE [Concomitant]
     Indication: LOWER RESPIRATORY TRACT INFECTION
     Route: 042
  6. HYDROCORTISONE [Concomitant]
     Dosage: 100 MG, TID
     Route: 065
  7. ENOXAPARIN SODIUM [Concomitant]
  8. KLACID [Concomitant]
     Indication: LOWER RESPIRATORY TRACT INFECTION
     Route: 065
  9. NEXIUM [Concomitant]
  10. TEMAZEPAM [Concomitant]

REACTIONS (13)
  - AGITATION [None]
  - BRONCHITIS [None]
  - CONFUSIONAL STATE [None]
  - DYSPNOEA [None]
  - INFLUENZA LIKE ILLNESS [None]
  - LOWER RESPIRATORY TRACT INFECTION [None]
  - NEUTROPHIL COUNT INCREASED [None]
  - PNEUMONIA [None]
  - PYREXIA [None]
  - RESPIRATORY DISORDER [None]
  - TREATMENT NONCOMPLIANCE [None]
  - TUBERCULOSIS [None]
  - WHITE BLOOD CELL COUNT INCREASED [None]
